FAERS Safety Report 9351118 (Version 1)
Quarter: 2013Q2

REPORT INFORMATION
  Report Type: Spontaneous
  Country: DE (occurrence: ES)
  Receive Date: 20130617
  Receipt Date: 20130617
  Transmission Date: 20140414
  Serious: Yes (Other)
  Sender: FDA-Public Use
  Company Number: ES-FRI-1000045956

PATIENT
  Age: 75 Year
  Sex: Female

DRUGS (1)
  1. ROFLUMILAST [Suspect]
     Indication: CHRONIC OBSTRUCTIVE PULMONARY DISEASE
     Route: 048
     Dates: start: 20121105, end: 20121204

REACTIONS (2)
  - Nail dystrophy [Not Recovered/Not Resolved]
  - Nail bed disorder [Not Recovered/Not Resolved]
